FAERS Safety Report 6652978-3 (Version None)
Quarter: 2010Q1

REPORT INFORMATION
  Report Type: 
  Country: None (occurrence: None)
  Receive Date: 20100326
  Receipt Date: 20100314
  Transmission Date: 20100710
  Serious: Yes (Other)
  Sender: FDA-Public Use
  Company Number: US-PFIZER INC-2010008947

PATIENT
  Sex: Male
  Weight: 79 kg

DRUGS (10)
  1. CHANTIX [Suspect]
     Indication: SMOKING CESSATION THERAPY
     Dosage: 0.5 MG, 1X/DAY
     Route: 048
     Dates: start: 20100116, end: 20100101
  2. CHANTIX [Suspect]
     Dosage: 0.5 MG, 2X/DAY
     Route: 048
     Dates: start: 20100101, end: 20100101
  3. CHANTIX [Suspect]
     Dosage: 1 MG, 2X/DAY
     Route: 048
     Dates: start: 20100101
  4. LISINOPRIL [Concomitant]
     Indication: HYPERTENSION
     Dosage: 20 MG, UNK
  5. SIMVASTATIN [Concomitant]
     Indication: BLOOD CHOLESTEROL INCREASED
     Dosage: 40 MG, UNK
  6. HYDROCODONE [Concomitant]
     Indication: BACK DISORDER
     Dosage: FREQUENCY: AS NEEDED,
     Route: 048
  7. XANAX [Concomitant]
     Indication: ANXIETY
     Dosage: FREQUENCY: AS NEEDED,
     Route: 048
  8. MELATONIN [Concomitant]
     Indication: SLEEP DISORDER
     Dosage: FREQUENCY: AS NEEDED,
     Route: 048
  9. VITAMIN D [Concomitant]
     Dosage: UNK
  10. VITAMIN B-12 [Concomitant]
     Dosage: UNK

REACTIONS (4)
  - AGITATION [None]
  - HYPERSENSITIVITY [None]
  - IMMUNE SYSTEM DISORDER [None]
  - RESTLESS LEGS SYNDROME [None]
